FAERS Safety Report 11158086 (Version 1)
Quarter: 2015Q2

REPORT INFORMATION
  Report Type: Spontaneous
  Country: US (occurrence: None)
  Receive Date: 20150513
  Receipt Date: 20150513
  Transmission Date: 20150821
  Serious: Yes (Hospitalization)
  Sender: FDA-Public Use
  Company Number: 2014PL000116

PATIENT
  Age: 16 Year
  Sex: Male
  Weight: 63.5 kg

DRUGS (2)
  1. HUMIRA [Suspect]
     Active Substance: ADALIMUMAB
     Indication: CROHN^S DISEASE
     Dates: start: 201111, end: 20121127
  2. IMURAN [Suspect]
     Active Substance: AZATHIOPRINE
     Indication: CROHN^S DISEASE
     Dates: end: 201208

REACTIONS (8)
  - Histoplasmosis disseminated [None]
  - Pyrexia [None]
  - Weight decreased [None]
  - Splenomegaly [None]
  - Asthenia [None]
  - Off label use [None]
  - Clostridium difficile infection [None]
  - Cough [None]

NARRATIVE: CASE EVENT DATE: 201111
